FAERS Safety Report 22048518 (Version 1)
Quarter: 2023Q1

REPORT INFORMATION
  Report Type: Spontaneous
  Country: JP (occurrence: JP)
  Receive Date: 20230301
  Receipt Date: 20230301
  Transmission Date: 20230418
  Serious: Yes (Hospitalization, Disabling, Other)
  Sender: FDA-Public Use
  Company Number: JP-GLAXOSMITHKLINE-JP2022JPN183658

PATIENT

DRUGS (1)
  1. DAPRODUSTAT [Suspect]
     Active Substance: DAPRODUSTAT
     Dosage: 6 MG

REACTIONS (4)
  - Brain neoplasm [Unknown]
  - Encephalopathy [Unknown]
  - Capillary permeability increased [Unknown]
  - Altered state of consciousness [Not Recovered/Not Resolved]
